FAERS Safety Report 6376311-X (Version None)
Quarter: 2009Q3

REPORT INFORMATION
  Report Type: 
  Country: None (occurrence: None)
  Receive Date: 20090922
  Receipt Date: 20090922
  Transmission Date: 20100115
  Serious: Yes (Hospitalization)
  Sender: FDA-Public Use
  Company Number: None

PATIENT
  Sex: Female
  Weight: 53.5 kg

DRUGS (10)
  1. CETUXIMAB 250 MG/M2 BRISTOL MEYERS SQUIBB [Suspect]
     Indication: CERVIX CARCINOMA
     Dosage: 405 WEEKLY IV
     Route: 042
     Dates: start: 20060914
  2. CETUXIMAB 250 MG/M2 BRISTOL MEYERS SQUIBB [Suspect]
     Indication: CERVIX CARCINOMA
     Dosage: 405 WEEKLY IV
     Route: 042
     Dates: start: 20060921
  3. CETUXIMAB 250 MG/M2 BRISTOL MEYERS SQUIBB [Suspect]
     Indication: CERVIX CARCINOMA
     Dosage: 390 WEEKLY IV
     Route: 042
     Dates: start: 20061003
  4. CETUXIMAB 250 MG/M2 BRISTOL MEYERS SQUIBB [Suspect]
     Indication: CERVIX CARCINOMA
     Dosage: 390 WEEKLY IV
     Route: 042
     Dates: start: 20061013
  5. CETUXIMAB 250 MG/M2 BRISTOL MEYERS SQUIBB [Suspect]
     Indication: CERVIX CARCINOMA
     Dosage: 390 WEEKLY IV
     Route: 042
     Dates: start: 20061019
  6. LISINOPRIL AND HYDROCHLOROTHIAZIDE [Concomitant]
  7. OXYCODONE HCL AND ACETAMINOPHEN [Concomitant]
  8. POTASSIUM CHLORIDE [Concomitant]
  9. APREPITANT [Concomitant]
  10. DEXAMETHASONE 4MG TAB [Concomitant]

REACTIONS (1)
  - HOSPITALISATION [None]
